FAERS Safety Report 18761687 (Version 1)
Quarter: 2021Q1

REPORT INFORMATION
  Report Type: Spontaneous
  Country: US (occurrence: US)
  Receive Date: 20210119
  Receipt Date: 20210119
  Transmission Date: 20210419
  Serious: No
  Sender: FDA-Public Use
  Company Number: None

PATIENT
  Age: 33 Year
  Sex: Female
  Weight: 69.75 kg

DRUGS (1)
  1. DEXTROAMPHET SACCHARAT, AMPHET ASPARTATE, DEXTROAMPHET SULFATE AND AMPHET SULFAT [Suspect]
     Active Substance: AMPHETAMINE ASPARTATE\AMPHETAMINE SULFATE\DEXTROAMPHETAMINE SACCHARATE\DEXTROAMPHETAMINE SULFATE
     Indication: ATTENTION DEFICIT HYPERACTIVITY DISORDER
     Dosage: ?          QUANTITY:90 TABLET(S);?
     Route: 048
     Dates: start: 20210107, end: 20210116

REACTIONS (10)
  - Dyspepsia [None]
  - Menorrhagia [None]
  - Cold sweat [None]
  - Feeling abnormal [None]
  - Fatigue [None]
  - Anxiety [None]
  - Product substitution issue [None]
  - Somnolence [None]
  - Product complaint [None]
  - Mood swings [None]

NARRATIVE: CASE EVENT DATE: 20210108
